FAERS Safety Report 9668084 (Version 1)
Quarter: 2013Q4

REPORT INFORMATION
  Report Type: Spontaneous
  Country: AT (occurrence: AT)
  Receive Date: 20131104
  Receipt Date: 20131104
  Transmission Date: 20140711
  Serious: Yes (Hospitalization, Other)
  Sender: FDA-Public Use
  Company Number: PHHY2013AT121290

PATIENT
  Age: 65 Year
  Sex: Female

DRUGS (38)
  1. PRAXITEN [Concomitant]
     Dosage: 30 MG, UNK
     Dates: start: 20130612, end: 20130613
  2. TEMESTA [Concomitant]
     Dosage: BETWEEN 1-2 MG
     Dates: start: 20130614, end: 20130701
  3. TEMESTA [Concomitant]
     Dosage: 1.5 MG, UNK
     Dates: start: 20130702, end: 20130705
  4. TEMESTA [Concomitant]
     Dosage: 1 MG, UNK
     Dates: start: 20130706, end: 20130710
  5. TEMESTA [Concomitant]
     Dosage: 2 MG, UNK
     Dates: start: 20130711, end: 20130711
  6. TEMESTA [Concomitant]
     Dosage: 1 MG, UNK
     Dates: start: 20130712, end: 20130714
  7. TEMESTA [Concomitant]
     Dosage: 1.5 MG, UNK
     Dates: start: 20130715, end: 20130715
  8. TEMESTA [Concomitant]
     Dosage: 1 MG, UNK
     Dates: start: 20130716, end: 20130719
  9. ZOLDEM [Concomitant]
     Dosage: 10 MG, UNK
     Dates: start: 20130614
  10. INDERAL [Concomitant]
     Dosage: 20 MG, UNK
     Dates: start: 20130708, end: 20130708
  11. INDERAL [Concomitant]
     Dosage: 30 MG, UNK
     Dates: start: 20130709, end: 20130710
  12. INDERAL [Concomitant]
     Dosage: 10 MG, UNK
     Dates: start: 20130711, end: 20130712
  13. CIRCADIN [Concomitant]
     Dosage: 2 MG, UNK
     Dates: start: 20130708
  14. EFFECTIN [Concomitant]
     Dosage: 75 MG, UNK
     Dates: start: 20130712, end: 20130716
  15. EFFECTIN [Concomitant]
     Dosage: 150 MG, UNK
     Dates: start: 20130717
  16. DIPHENHYDRAMINE HYDROCHLORIDE [Concomitant]
     Dosage: 50 MG, UNK
     Dates: start: 20130721
  17. SAROTEN [Concomitant]
     Dosage: UNK UKN, UNK
     Dates: end: 20130606
  18. LUMIGAN [Concomitant]
     Dosage: UNK UKN, UNK
  19. SERTRALINE [Suspect]
     Dosage: 25 MG, UNK
     Dates: start: 20130612, end: 20130613
  20. SERTRALINE [Suspect]
     Dosage: 50 MG, UNK
     Dates: start: 20130614, end: 20130616
  21. SERTRALINE [Suspect]
     Dosage: 75 MG, UNK
     Dates: start: 20130617, end: 20130618
  22. SERTRALINE [Suspect]
     Dosage: 100 MG, UNK
     Dates: start: 20130619, end: 20130619
  23. SERTRALINE [Suspect]
     Dosage: 100 MG, UNK
     Dates: start: 20130711, end: 20130711
  24. SEROQUEL [Suspect]
     Dosage: 25 MG, UNK
     Dates: start: 20130625, end: 20130625
  25. SEROQUEL [Suspect]
     Dosage: 50 MG, UNK
     Dates: start: 20130626, end: 20130626
  26. SEROQUEL [Suspect]
     Dosage: 100 MG, UNK
     Dates: start: 20130627, end: 20130627
  27. SEROQUEL [Suspect]
     Dosage: 100 MG, UNK
     Dates: start: 20130627, end: 20130628
  28. SEROQUEL [Suspect]
     Dosage: 200 MG, UNK
     Dates: start: 20130628, end: 20130628
  29. SEROQUEL [Suspect]
     Dosage: 150 MG, UNK
     Dates: start: 20130629, end: 20130629
  30. SEROQUEL [Suspect]
     Dosage: 300 MG, UNK
     Dates: start: 20130629, end: 20130709
  31. SEROQUEL [Suspect]
     Dosage: 400 MG, UNK
     Dates: start: 20130710, end: 20130718
  32. SEROQUEL [Suspect]
     Dosage: 200 MG, UNK
     Dates: start: 20130719, end: 20130720
  33. RIVOTRIL [Concomitant]
     Dosage: 0.5 MG, UNK
     Dates: start: 20130607, end: 20130610
  34. MIRTABENE [Concomitant]
     Dosage: BETWEEN 15-30 MG
     Dates: start: 20130607, end: 20130624
  35. DOMINAL [Concomitant]
     Dosage: BETWEEN 40-80 MG
     Dates: start: 20130607
  36. ATARAX [Concomitant]
     Dosage: UNK UKN, UNK
     Dates: start: 20130609
  37. IXEL [Concomitant]
     Dosage: 100 MG, UNK
     Dates: start: 20130610
  38. IXEL [Concomitant]
     Dosage: 50 MG, UNK
     Dates: start: 20130611, end: 20130612

REACTIONS (2)
  - Pulmonary embolism [Recovering/Resolving]
  - Dyspnoea [Recovering/Resolving]
